FAERS Safety Report 7542234-3 (Version None)
Quarter: 2011Q2

REPORT INFORMATION
  Report Type: 
  Country: None (occurrence: None)
  Receive Date: 20110613
  Receipt Date: 20110606
  Transmission Date: 20111010
  Serious: Yes (Other)
  Sender: FDA-Public Use
  Company Number: FR-PFIZER INC-2011123526

PATIENT
  Age: 68 Year
  Sex: Female

DRUGS (2)
  1. SOMAVERT [Suspect]
     Dosage: 10 MG, 1X/DAY
     Dates: start: 20101101
  2. SOMATULINE DEPOT [Concomitant]

REACTIONS (1)
  - BILIARY COLIC [None]
